FAERS Safety Report 8105974-3 (Version None)
Quarter: 2012Q1

REPORT INFORMATION
  Report Type: 
  Country: None (occurrence: None)
  Receive Date: 20120202
  Receipt Date: 20120126
  Transmission Date: 20120608
  Serious: No
  Sender: FDA-Public Use
  Company Number: US-BIOGENIDEC-2012BI003316

PATIENT
  Age: 47 Year
  Sex: Female

DRUGS (3)
  1. TYSABRI [Suspect]
     Indication: MULTIPLE SCLEROSIS
     Route: 042
     Dates: start: 20080624, end: 20100520
  2. AVONEX [Concomitant]
     Indication: MULTIPLE SCLEROSIS
     Route: 030
     Dates: start: 20010515
  3. TYSABRI [Suspect]
     Route: 042
     Dates: start: 20110718

REACTIONS (3)
  - GINGIVAL ABSCESS [None]
  - PHARYNGITIS [None]
  - URINARY TRACT INFECTION [None]
